FAERS Safety Report 10229029 (Version 3)
Quarter: 2014Q3

REPORT INFORMATION
  Report Type: Spontaneous
  Country: GB (occurrence: GB)
  Receive Date: 20140610
  Receipt Date: 20140709
  Transmission Date: 20150326
  Serious: Yes (Other)
  Sender: FDA-Public Use
  Company Number: GB-GILEAD-2014-0104852

PATIENT
  Age: 84 Year
  Sex: Male

DRUGS (12)
  1. WARFARIN [Concomitant]
     Active Substance: WARFARIN
  2. RANOLAZINE [Suspect]
     Active Substance: RANOLAZINE
     Dosage: 375 MG, QD
     Route: 065
     Dates: start: 20140423, end: 20140507
  3. SALMETEROL [Concomitant]
     Active Substance: SALMETEROL
     Dosage: 25 ?G, BID
  4. BISOPROLOL [Concomitant]
     Active Substance: BISOPROLOL
     Dosage: 5 MG, UNK
  5. FLUVASTATIN [Concomitant]
     Active Substance: FLUVASTATIN SODIUM
     Dosage: 40 MG, UNK
  6. OMEPRAZOLE. [Concomitant]
     Active Substance: OMEPRAZOLE
  7. RANOLAZINE [Suspect]
     Active Substance: RANOLAZINE
     Indication: ANGINA PECTORIS
     Dosage: 500 MG, BID
     Route: 065
     Dates: start: 20140508, end: 20140530
  8. ASPIRIN. [Concomitant]
     Active Substance: ASPIRIN
     Dosage: 750 MG, UNK
  9. ISOTARD                            /07346401/ [Concomitant]
  10. RAMIPRIL. [Concomitant]
     Active Substance: RAMIPRIL
     Dosage: 2.5 MG, UNK
  11. TIOTROPIUM BROMIDE [Concomitant]
     Active Substance: TIOTROPIUM BROMIDE
     Dosage: 18 ?G, UNK
  12. FLUTICASONE [Concomitant]
     Active Substance: FLUTICASONE\FLUTICASONE PROPIONATE
     Dosage: 250 ?G, UNK

REACTIONS (8)
  - Dyspnoea [Recovering/Resolving]
  - Headache [Recovering/Resolving]
  - Balance disorder [Recovering/Resolving]
  - Asthma [Recovering/Resolving]
  - Nausea [Recovering/Resolving]
  - Drug ineffective [Recovering/Resolving]
  - Presyncope [Recovering/Resolving]
  - Dizziness [Recovering/Resolving]

NARRATIVE: CASE EVENT DATE: 201405
